FAERS Safety Report 18420659 (Version 1)
Quarter: 2020Q4

REPORT INFORMATION
  Report Type: Spontaneous
  Country: AU (occurrence: AU)
  Receive Date: 20201023
  Receipt Date: 20201023
  Transmission Date: 20210114
  Serious: Yes (Other)
  Sender: FDA-Public Use
  Company Number: NVSC2020AU283028

PATIENT
  Sex: Male

DRUGS (3)
  1. PACLITAXEL. [Suspect]
     Active Substance: PACLITAXEL
     Indication: NON-SMALL CELL LUNG CANCER STAGE IV
     Dosage: (CHEMO X4)
     Route: 065
     Dates: end: 20201012
  2. CARBOPLATIN. [Suspect]
     Active Substance: CARBOPLATIN
     Indication: NON-SMALL CELL LUNG CANCER STAGE IV
     Dosage: (CHEMO X4)
     Route: 065
     Dates: end: 20201012
  3. PEMBROLIZUMAB. [Suspect]
     Active Substance: PEMBROLIZUMAB
     Indication: NON-SMALL CELL LUNG CANCER STAGE IV
     Dosage: (CHEMO 8XCYCLES)
     Route: 065
     Dates: end: 20201012

REACTIONS (4)
  - Metastasis [Unknown]
  - Lymphadenopathy [Unknown]
  - Non-small cell lung cancer stage IV [Unknown]
  - Malignant neoplasm progression [Unknown]
